FAERS Safety Report 22941881 (Version 2)
Quarter: 2023Q4

REPORT INFORMATION
  Report Type: Report from Study
  Country: DE (occurrence: None)
  Receive Date: 20230914
  Receipt Date: 20231012
  Transmission Date: 20240110
  Serious: Yes (Death)
  Sender: FDA-Public Use
  Company Number: DE-ROCHE-3420911

PATIENT
  Sex: Male

DRUGS (10)
  1. PERTUZUMAB [Suspect]
     Active Substance: PERTUZUMAB
     Indication: Breast cancer metastatic
     Route: 065
     Dates: start: 20200708
  2. TRASTUZUMAB [Suspect]
     Active Substance: TRASTUZUMAB
     Indication: Breast cancer metastatic
     Route: 041
     Dates: start: 20200708
  3. PALBOCICLIB [Suspect]
     Active Substance: PALBOCICLIB
     Indication: Breast cancer metastatic
     Dosage: ONCE PER DAY FOR 21 DAYS FOLLOWED BY 7 DAYS OFF TO COMPLETE 28 DAY CYCLE.
     Route: 048
     Dates: start: 20200708
  4. ANASTROZOLE [Suspect]
     Active Substance: ANASTROZOLE
     Indication: Breast cancer metastatic
     Route: 048
     Dates: start: 20200708
  5. LOSARTAN [Concomitant]
     Active Substance: LOSARTAN
     Dates: start: 20140101, end: 20230210
  6. SIMVASTATIN [Concomitant]
     Active Substance: SIMVASTATIN
     Dates: start: 20140101
  7. AMLODIPINE [Concomitant]
     Active Substance: AMLODIPINE BESYLATE
     Dates: start: 20140101, end: 20230210
  8. ASPIRIN [Concomitant]
     Active Substance: ASPIRIN
     Dates: start: 20140101, end: 20230210
  9. HYDROCHLOROTHIAZIDE [Concomitant]
     Active Substance: HYDROCHLOROTHIAZIDE
     Dates: start: 20200701, end: 20230210
  10. TORSEMIDE [Concomitant]
     Active Substance: TORSEMIDE
     Dates: start: 20200301, end: 20230210

REACTIONS (1)
  - Death [Fatal]

NARRATIVE: CASE EVENT DATE: 20230217
